FAERS Safety Report 22012511 (Version 4)
Quarter: 2023Q1

REPORT INFORMATION
  Report Type: Report from Study
  Country: US (occurrence: US)
  Receive Date: 20230220
  Receipt Date: 20230318
  Transmission Date: 20230418
  Serious: Yes (Hospitalization)
  Sender: FDA-Public Use
  Company Number: US-002147023-NVSC2023US038259

PATIENT
  Sex: Female
  Weight: 72.562 kg

DRUGS (4)
  1. TREPROSTINIL [Suspect]
     Active Substance: TREPROSTINIL
     Indication: Pulmonary arterial hypertension
     Dosage: 16 NG/KG/ MIN, CONT
     Route: 042
     Dates: start: 20230207
  2. TREPROSTINIL [Suspect]
     Active Substance: TREPROSTINIL
     Dosage: 16 NG/KG/ MIN, CONT
     Route: 042
  3. SILDENAFIL CITRATE [Concomitant]
     Active Substance: SILDENAFIL CITRATE
     Indication: Product used for unknown indication
     Dosage: UNK
     Route: 065
  4. AMBRISENTAN [Concomitant]
     Active Substance: AMBRISENTAN
     Indication: Product used for unknown indication
     Dosage: UNK
     Route: 065

REACTIONS (4)
  - Hypervolaemia [Unknown]
  - Paraesthesia [Unknown]
  - Peripheral swelling [Unknown]
  - Fatigue [Unknown]
